FAERS Safety Report 25926769 (Version 1)
Quarter: 2025Q4

REPORT INFORMATION
  Report Type: Spontaneous
  Country: US (occurrence: None)
  Receive Date: 20251015
  Receipt Date: 20251015
  Transmission Date: 20260117
  Serious: No
  Sender: FDA-CTU
  Company Number: None

PATIENT
  Age: 75 Year
  Sex: Female
  Weight: 88.2 kg

DRUGS (6)
  1. DEXAMETHASONE\NEOMYCIN\POLYMYXIN B SULFATE [Suspect]
     Active Substance: DEXAMETHASONE\NEOMYCIN\POLYMYXIN B SULFATE
     Indication: Dry eye
     Dosage: 1 DROP(S)  4 TIMES A DAY OPHTHALMIC
     Route: 047
     Dates: start: 20250919, end: 20250926
  2. ACETYLCYSTEINE [Concomitant]
     Active Substance: ACETYLCYSTEINE
  3. IVIZIA [Concomitant]
     Active Substance: POVIDONE
  4. Systane Nighttime Severe Dry Eye Relief [Concomitant]
  5. VITAMIN C [Concomitant]
     Active Substance: ASCORBIC ACID
  6. VITAMIN D3 [Concomitant]
     Active Substance: CHOLECALCIFEROL

REACTIONS (12)
  - Eye pain [None]
  - Keratitis [None]
  - Intraocular pressure increased [None]
  - Vision blurred [None]
  - Photophobia [None]
  - Eyelid ptosis [None]
  - Eye swelling [None]
  - Eye pruritus [None]
  - Ocular discomfort [None]
  - Foreign body sensation in eyes [None]
  - Eye irritation [None]
  - Ocular hyperaemia [None]

NARRATIVE: CASE EVENT DATE: 20250919
